FAERS Safety Report 5071797-5 (Version None)
Quarter: 2006Q3

REPORT INFORMATION
  Report Type: 
  Country: None (occurrence: None)
  Receive Date: 20060804
  Receipt Date: 20041027
  Transmission Date: 20061208
  Serious: Yes (Other)
  Sender: FDA-Public Use
  Company Number: PHEH2004US11591

PATIENT
  Age: 53 Year
  Sex: Female

DRUGS (12)
  1. ZOMETA [Suspect]
     Indication: METASTASES TO BONE
     Dosage: 4 MG, QMO
     Dates: start: 20010101, end: 20050413
  2. AREDIA [Suspect]
     Indication: METASTASES TO BONE
     Dosage: 90MG Q4WK
     Dates: start: 19990812
  3. OXYCONTIN [Concomitant]
     Indication: PAIN
     Dosage: 20MG BID
  4. LOTENSIN [Concomitant]
     Dosage: 20MG QD
  5. CELEXA [Concomitant]
     Dosage: 20MG QD
  6. LASIX [Concomitant]
     Dosage: 40GM BID
  7. K-DUR 10 [Concomitant]
     Dosage: 20 MEQ BID
  8. FEMARA [Concomitant]
     Dosage: 2.5MG QD
     Dates: start: 20000915
  9. HERCEPTIN [Concomitant]
     Dosage: 6MG/KG Q3WK
     Dates: start: 19990801
  10. TAXOL [Concomitant]
     Indication: METASTASIS
     Dates: start: 20000421, end: 20000818
  11. NAVELBINE [Concomitant]
     Dosage: 30MG/M2 UNKDAY1,8
     Dates: start: 20030129, end: 20040128
  12. AUGMENTIN '125' [Suspect]

REACTIONS (23)
  - ANXIETY [None]
  - BLOOD CREATININE INCREASED [None]
  - BONE DEBRIDEMENT [None]
  - BONE DISORDER [None]
  - BONE SWELLING [None]
  - DENTAL OPERATION [None]
  - FALL [None]
  - HUMERUS FRACTURE [None]
  - HYPERBARIC OXYGEN THERAPY [None]
  - IMPAIRED HEALING [None]
  - INFECTION [None]
  - METASTASES TO LUNG [None]
  - OSTEOMYELITIS [None]
  - OSTEONECROSIS [None]
  - PAIN [None]
  - PAIN IN JAW [None]
  - PATHOLOGICAL FRACTURE [None]
  - SOFT TISSUE DISORDER [None]
  - SURGERY [None]
  - TOOTH DISORDER [None]
  - TOOTH EXTRACTION [None]
  - TOOTH LOSS [None]
  - TRISMUS [None]
